FAERS Safety Report 6646193-7 (Version None)
Quarter: 2010Q1

REPORT INFORMATION
  Report Type: 
  Country: None (occurrence: None)
  Receive Date: 20100323
  Receipt Date: 20100315
  Transmission Date: 20100710
  Serious: Yes (Other)
  Sender: FDA-Public Use
  Company Number: US-AMGEN-QUU391044

PATIENT
  Sex: Female

DRUGS (12)
  1. ENBREL [Suspect]
     Indication: RHEUMATOID ARTHRITIS
     Route: 058
     Dates: start: 20030301, end: 20100203
  2. DARVOCET-N 100 [Concomitant]
  3. HYDROCHLOROTHIAZIDE [Concomitant]
  4. ZYRTEC [Concomitant]
  5. LOPRESSOR [Concomitant]
  6. ASPIRIN [Concomitant]
     Route: 048
  7. FLONASE [Concomitant]
  8. PRILOSEC [Concomitant]
  9. ZANTAC [Concomitant]
  10. CITRACAL [Concomitant]
  11. FISH OIL [Concomitant]
  12. UNSPECIFIED TOPICAL PRODUCT [Concomitant]

REACTIONS (23)
  - ACTIVITIES OF DAILY LIVING IMPAIRED [None]
  - ARTHRALGIA [None]
  - BALANCE DISORDER [None]
  - BENIGN LUNG NEOPLASM [None]
  - DRY SKIN [None]
  - FALL [None]
  - FOOT DEFORMITY [None]
  - GOITRE [None]
  - HIP FRACTURE [None]
  - HYPERTENSION [None]
  - INJECTION SITE DISCOMFORT [None]
  - INJECTION SITE REACTION [None]
  - INTERVERTEBRAL DISC DEGENERATION [None]
  - LENTIGO MALIGNA STAGE UNSPECIFIED [None]
  - NEUROPATHY PERIPHERAL [None]
  - OSTEOPOROSIS [None]
  - RENAL FAILURE CHRONIC [None]
  - RHINITIS SEASONAL [None]
  - SPONDYLOLISTHESIS [None]
  - STRESS URINARY INCONTINENCE [None]
  - THROMBOCYTOPENIA [None]
  - UNEQUAL LIMB LENGTH [None]
  - UNEVALUABLE EVENT [None]
